FAERS Safety Report 6117028-6 (Version None)
Quarter: 2009Q1

REPORT INFORMATION
  Report Type: 
  Country: None (occurrence: None)
  Receive Date: 20090314
  Receipt Date: 20090102
  Transmission Date: 20090719
  Serious: No
  Sender: FDA-Public Use
  Company Number: US-ABBOTT-09P-163-0495746-00

PATIENT
  Sex: Female
  Weight: 56.75 kg

DRUGS (13)
  1. HUMIRA [Suspect]
     Indication: CROHN'S DISEASE
     Route: 058
     Dates: start: 20060401
  2. HUMIRA [Suspect]
     Indication: COLITIS
  3. NORVASC [Concomitant]
     Indication: HYPERTENSION
     Route: 048
  4. BENICAR [Concomitant]
     Indication: HYPERTENSION
     Route: 048
  5. ZOCOR [Concomitant]
     Indication: BLOOD CHOLESTEROL INCREASED
     Route: 048
  6. SINGULAIR [Concomitant]
     Indication: ASTHMA
     Route: 048
  7. VITAMIN D [Concomitant]
     Indication: VITAMIN SUPPLEMENTATION
     Route: 048
  8. CALCIUM [Concomitant]
     Indication: MINERAL SUPPLEMENTATION
     Route: 048
  9. ACTONEL [Concomitant]
     Indication: OSTEOPOROSIS
     Route: 048
  10. FISH OIL [Concomitant]
     Indication: CORONARY ARTERY DISEASE
     Route: 048
  11. FISH OIL [Concomitant]
     Indication: BLOOD CHOLESTEROL
  12. VITAMIN B 50 [Concomitant]
     Indication: VITAMIN SUPPLEMENTATION
     Route: 048
  13. VITAMIN B 50 [Concomitant]
     Indication: FACIAL PALSY

REACTIONS (4)
  - DRUG DELIVERY SYSTEM MALFUNCTION [None]
  - INCORRECT DOSE ADMINISTERED [None]
  - INJECTION SITE HAEMATOMA [None]
  - WEIGHT INCREASED [None]
